FAERS Safety Report 5047587-6 (Version None)
Quarter: 2006Q3

REPORT INFORMATION
  Report Type: 
  Country: None (occurrence: None)
  Receive Date: 20060705
  Receipt Date: 20060705
  Transmission Date: 20061208
  Serious: No
  Sender: FDA-Public Use
  Company Number: None

PATIENT
  Sex: Female
  Weight: 60.3284 kg

DRUGS (1)
  1. OMNISCAN [Suspect]
     Indication: NEPHROGENIC FIBROSING DERMOPATHY
     Dosage: 40 CC ONCE IV BOLUS [ONE TIME INJECTION]
     Route: 040
     Dates: start: 20050512, end: 20050512

REACTIONS (5)
  - CONDITION AGGRAVATED [None]
  - NEPHROGENIC FIBROSING DERMOPATHY [None]
  - OEDEMA PERIPHERAL [None]
  - RASH ERYTHEMATOUS [None]
  - SYSTEMIC LUPUS ERYTHEMATOSUS [None]
